FAERS Safety Report 7969828-5 (Version None)
Quarter: 2011Q4

REPORT INFORMATION
  Report Type: 
  Country: None (occurrence: None)
  Receive Date: 20111212
  Receipt Date: 20111206
  Transmission Date: 20120403
  Serious: Yes (Hospitalization)
  Sender: FDA-Public Use
  Company Number: CH-PFIZER INC-2011266616

PATIENT
  Age: 71 Year
  Sex: Female
  Weight: 58 kg

DRUGS (15)
  1. KEPPRA [Suspect]
     Dosage: 500MG MORNING / 250MG EVENING
     Route: 048
     Dates: start: 20110908
  2. HYGROTON [Concomitant]
     Dosage: 25 MG, SINGLE
     Route: 048
     Dates: start: 20110819, end: 20110819
  3. TEGRETOL [Concomitant]
     Dosage: 200 MG, 2X/DAY
     Route: 048
     Dates: start: 20110826, end: 20110901
  4. NORVASC [Suspect]
     Dosage: 5 MG, 1X/DAY
     Route: 048
     Dates: start: 20110901, end: 20110906
  5. KEPPRA [Suspect]
     Dosage: 500 MG, 2X/DAY
     Route: 048
     Dates: start: 20110906, end: 20110907
  6. DIOVAN [Concomitant]
     Dosage: 80 MG, 2X/DAY
     Route: 048
     Dates: start: 20110814, end: 20110822
  7. TEGRETOL [Concomitant]
     Dosage: 200 MG, 1X/DAY
     Route: 048
     Dates: start: 20110902, end: 20110903
  8. AUGMENTIN [Concomitant]
     Dosage: 1 G, 2X/DAY
     Route: 048
     Dates: start: 20110821, end: 20110826
  9. LEVOTHYROXINE SODIUM [Concomitant]
     Dosage: 0.05 MG, 1X/DAY
     Route: 048
  10. DIOVAN [Concomitant]
     Indication: HYPERTENSION
     Dosage: 40 MG, 1X/DAY
     Route: 048
     Dates: end: 20110813
  11. URBANYL [Concomitant]
     Dosage: 5MG INTHE MORNING, 10MG IN THE EVENING
     Route: 048
     Dates: start: 20110822, end: 20110824
  12. KEPPRA [Suspect]
     Indication: EPILEPSY
     Dosage: 500 MG, 2X/DAY
     Route: 048
     Dates: start: 20110901, end: 20110902
  13. KEPPRA [Suspect]
     Dosage: 500 MG, 3X/DAY
     Route: 048
     Dates: start: 20110903, end: 20110905
  14. TEGRETOL [Concomitant]
     Indication: EPILEPSY
     Dosage: 200 MG, 2X/DAY
     Route: 048
     Dates: start: 20110815, end: 20110819
  15. TEGRETOL [Concomitant]
     Dosage: 200 MG, 1X/DAY
     Route: 048
     Dates: start: 20110824, end: 20110825

REACTIONS (3)
  - DIZZINESS [None]
  - HEAD DISCOMFORT [None]
  - FATIGUE [None]
